FAERS Safety Report 6253749-2 (Version None)
Quarter: 2009Q2

REPORT INFORMATION
  Report Type: 
  Country: None (occurrence: None)
  Receive Date: 20090630
  Receipt Date: 20090616
  Transmission Date: 20091009
  Serious: Yes (Other)
  Sender: FDA-Public Use
  Company Number: PAR_03045_2009

PATIENT
  Sex: Female
  Weight: 51.7101 kg

DRUGS (3)
  1. MEGACE ES [Suspect]
     Indication: WEIGHT DECREASED
     Dosage: 650 MG QD/125 MG/ML/ 150 ML, ORAL
     Route: 048
     Dates: start: 20090301, end: 20090615
  2. SPIRIVA [Concomitant]
  3. ASMANEX TWISTHALER [Concomitant]

REACTIONS (6)
  - DIZZINESS [None]
  - DYSPNOEA [None]
  - HAEMOPTYSIS [None]
  - MICTURITION URGENCY [None]
  - SOMNOLENCE [None]
  - URINARY INCONTINENCE [None]
